FAERS Safety Report 18419080 (Version 1)
Quarter: 2020Q4

REPORT INFORMATION
  Report Type: Spontaneous
  Country: US (occurrence: US)
  Receive Date: 20201023
  Receipt Date: 20201023
  Transmission Date: 20210114
  Serious: No
  Sender: FDA-Public Use
  Company Number: None

PATIENT
  Age: 73 Year
  Sex: Female
  Weight: 82.6 kg

DRUGS (1)
  1. RITUXIMAB. [Suspect]
     Active Substance: RITUXIMAB

REACTIONS (4)
  - Dysphonia [None]
  - Pruritus [None]
  - Periorbital swelling [None]
  - Headache [None]

NARRATIVE: CASE EVENT DATE: 20201017
